FAERS Safety Report 26032029 (Version 1)
Quarter: 2025Q4

REPORT INFORMATION
  Report Type: Report from Study
  Country: US (occurrence: US)
  Receive Date: 20251112
  Receipt Date: 20251112
  Transmission Date: 20260117
  Serious: No
  Sender: ACADIA PHARMACEUTICALS
  Company Number: US-ACADIA PHARMACEUTICALS INC.-ACA-2025-PIM-012085

PATIENT
  Sex: Male

DRUGS (7)
  1. NUPLAZID [Suspect]
     Active Substance: PIMAVANSERIN TARTRATE
     Indication: Parkinson^s disease
     Dosage: 34 MILLIGRAM, QD
     Route: 048
     Dates: start: 20250314
  2. CARBIDOPA\LEVODOPA [Concomitant]
     Active Substance: CARBIDOPA\LEVODOPA
  3. CLOZAPINE [Concomitant]
     Active Substance: CLOZAPINE
  4. DONEPEZIL [Concomitant]
     Active Substance: DONEPEZIL
  5. FINASTERIDE [Concomitant]
     Active Substance: FINASTERIDE
  6. GEMTESA [Concomitant]
     Active Substance: VIBEGRON
  7. MIDODRINE [Concomitant]
     Active Substance: MIDODRINE

REACTIONS (2)
  - Condition aggravated [Unknown]
  - Somnolence [Unknown]
